FAERS Safety Report 17584031 (Version 1)
Quarter: 2020Q1

REPORT INFORMATION
  Report Type: Spontaneous
  Country: US (occurrence: US)
  Receive Date: 20200326
  Receipt Date: 20200326
  Transmission Date: 20200409
  Serious: Yes (Hospitalization, Other)
  Sender: FDA-Public Use
  Company Number: US-SUN PHARMACEUTICAL INDUSTRIES LTD-2020R1-241562

PATIENT
  Age: 29 Year
  Sex: Female

DRUGS (6)
  1. TACROLIMUS. [Suspect]
     Active Substance: TACROLIMUS
     Indication: NECROBIOSIS LIPOIDICA DIABETICORUM
     Dosage: UNK
     Route: 061
  2. HYDROXYCHLOROQUINE [Suspect]
     Active Substance: HYDROXYCHLOROQUINE
     Indication: NECROBIOSIS LIPOIDICA DIABETICORUM
     Dosage: UNK
     Route: 065
  3. PENTOXIFYLLINE. [Suspect]
     Active Substance: PENTOXIFYLLINE
     Indication: NECROBIOSIS LIPOIDICA DIABETICORUM
     Dosage: UNK
     Route: 065
  4. ADALIMUMAB [Suspect]
     Active Substance: ADALIMUMAB
     Indication: NECROBIOSIS LIPOIDICA DIABETICORUM
     Dosage: UNK
     Route: 065
  5. CLOBETASOL [Suspect]
     Active Substance: CLOBETASOL
     Indication: NECROBIOSIS LIPOIDICA DIABETICORUM
     Dosage: UNK
     Route: 061
  6. TRIAMCINOLONE [Suspect]
     Active Substance: TRIAMCINOLONE
     Indication: NECROBIOSIS LIPOIDICA DIABETICORUM
     Dosage: UNK
     Route: 026

REACTIONS (6)
  - Therapeutic product effect incomplete [Unknown]
  - Treatment failure [Unknown]
  - Cellulitis [Unknown]
  - Pseudomonal skin infection [Unknown]
  - Drug resistance [Unknown]
  - Gastrointestinal disorder [Unknown]
